FAERS Safety Report 9277531 (Version 1)
Quarter: 2013Q2

REPORT INFORMATION
  Report Type: Spontaneous
  Country: US (occurrence: US)
  Receive Date: 20130508
  Receipt Date: 20130508
  Transmission Date: 20140414
  Serious: Yes (Other)
  Sender: FDA-Public Use
  Company Number: US-ELI_LILLY_AND_COMPANY-US201304008932

PATIENT
  Sex: Female

DRUGS (1)
  1. STRATTERA [Suspect]
     Dosage: 25 MG, UNK
     Dates: start: 2012

REACTIONS (4)
  - Cerebrovascular accident [Unknown]
  - Road traffic accident [Unknown]
  - Convulsion [Unknown]
  - Poisoning [Unknown]
